FAERS Safety Report 7064780-1 (Version None)
Quarter: 2010Q4

REPORT INFORMATION
  Report Type: 
  Country: None (occurrence: None)
  Receive Date: 20101027
  Receipt Date: 20101021
  Transmission Date: 20110411
  Serious: Yes (Other)
  Sender: FDA-Public Use
  Company Number: IN-ROXANE LABORATORIES, INC.-2010-RO-01411RO

PATIENT
  Age: 60 Year
  Sex: Female

DRUGS (3)
  1. CYCLOPHOSPHAMIDE [Suspect]
     Indication: BREAST CANCER
     Route: 048
  2. METHOTREXATE [Suspect]
     Indication: BREAST CANCER
  3. 5-FLOUROURACIL [Suspect]
     Indication: BREAST CANCER

REACTIONS (2)
  - MALIGNANT PLEURAL EFFUSION [None]
  - NAIL PIGMENTATION [None]
